FAERS Safety Report 10272125 (Version 1)
Quarter: 2014Q3

REPORT INFORMATION
  Report Type: Spontaneous
  Country: BR (occurrence: BR)
  Receive Date: 20140702
  Receipt Date: 20140702
  Transmission Date: 20150326
  Serious: Yes (Other)
  Sender: FDA-Public Use
  Company Number: BR-ROCHE-1426195

PATIENT
  Sex: Female
  Weight: 55 kg

DRUGS (4)
  1. RIVOTRIL [Suspect]
     Active Substance: CLONAZEPAM
     Indication: LABYRINTHITIS
  2. EXODUS [Concomitant]
     Active Substance: ESCITALOPRAM OXALATE
     Indication: ANXIETY
     Route: 065
  3. TENORETIC [Concomitant]
     Active Substance: ATENOLOL\CHLORTHALIDONE
     Indication: BLOOD PRESSURE ABNORMAL
     Dosage: 50/12.5 - HALF TABLET IN THE MORNING
     Route: 065
  4. RIVOTRIL [Suspect]
     Active Substance: CLONAZEPAM
     Indication: ANXIETY
     Dosage: 8 DROPS AT NIGHT
     Route: 065

REACTIONS (5)
  - Syncope [Recovered/Resolved]
  - Abdominal pain [Not Recovered/Not Resolved]
  - Fall [Unknown]
  - Oral pain [Unknown]
  - Head injury [Unknown]
